FAERS Safety Report 4862290-0 (Version None)
Quarter: 2005Q4

REPORT INFORMATION
  Report Type: 
  Country: None (occurrence: None)
  Receive Date: 20051129
  Receipt Date: 20050830
  Transmission Date: 20060501
  Serious: No
  Sender: FDA-Public Use
  Company Number: WAES 0508USA04904

PATIENT
  Age: 47 Year
  Sex: Male
  Weight: 104.3273 kg

DRUGS (4)
  1. ZETIA [Suspect]
     Indication: HYPERLIPIDAEMIA
     Dosage: 10 MG/DAILY/PO
     Route: 048
     Dates: start: 20050101
  2. LEVOXYL [Concomitant]
  3. LIPITOR [Concomitant]
  4. TOPROL-XL [Concomitant]

REACTIONS (3)
  - FATIGUE [None]
  - LETHARGY [None]
  - OVERDOSE [None]
